FAERS Safety Report 4547129-5 (Version None)
Quarter: 2005Q1

REPORT INFORMATION
  Report Type: 
  Country: None (occurrence: None)
  Receive Date: 20050105
  Receipt Date: 20041222
  Transmission Date: 20050727
  Serious: Yes (Death, Other)
  Sender: FDA-Public Use
  Company Number: 200416240BCC

PATIENT
  Sex: Male

DRUGS (1)
  1. ALEVE [Suspect]

REACTIONS (1)
  - MYOCARDIAL INFARCTION [None]
